FAERS Safety Report 8825887 (Version 2)
Quarter: 2012Q4

REPORT INFORMATION
  Report Type: 
  Country: SE (occurrence: SE)
  Receive Date: 20121005
  Receipt Date: 20121016
  Transmission Date: 20130627
  Serious: Yes (Hospitalization, Other)
  Sender: FDA-Public Use
  Company Number: SE-BAYER-2012-100829

PATIENT
  Sex: Female

DRUGS (2)
  1. MIRENA [Suspect]
     Dosage: 20 mcg/24hr, UNK
     Route: 015
     Dates: start: 1998
  2. ANAESTHETICS, LOCAL [Concomitant]

REACTIONS (4)
  - Complication of device removal [None]
  - Uterine prolapse [None]
  - Pelvic adhesions [None]
  - Vaginal haemorrhage [None]
